FAERS Safety Report 5577676-9 (Version None)
Quarter: 2007Q4

REPORT INFORMATION
  Report Type: 
  Country: None (occurrence: None)
  Receive Date: 20071130
  Receipt Date: 20070725
  Transmission Date: 20080405
  Serious: No
  Sender: FDA-Public Use
  Company Number: 2006PV017984

PATIENT
  Age: 27 Year
  Sex: Female

DRUGS (5)
  1. EXENATIDE(EXENATIDE) PEN,DISPOSABLE [Suspect]
     Indication: TYPE 2 DIABETES MELLITUS
     Dosage: SUBCUTANEOUS ; SUBCUTANEOUS ; SUBCUTANEOUS
     Route: 058
     Dates: start: 20050701, end: 20060201
  2. EXENATIDE(EXENATIDE) PEN,DISPOSABLE [Suspect]
     Indication: TYPE 2 DIABETES MELLITUS
     Dosage: SUBCUTANEOUS ; SUBCUTANEOUS ; SUBCUTANEOUS
     Route: 058
     Dates: start: 20060401, end: 20060718
  3. EXENATIDE(EXENATIDE) PEN,DISPOSABLE [Suspect]
     Indication: TYPE 2 DIABETES MELLITUS
     Dosage: SUBCUTANEOUS ; SUBCUTANEOUS ; SUBCUTANEOUS
     Route: 058
     Dates: start: 20070301, end: 20070701
  4. GLYBURIDE [Concomitant]
  5. GLUCOPHAGE [Concomitant]

REACTIONS (1)
  - DRUG EXPOSURE DURING PREGNANCY [None]
